FAERS Safety Report 10347499 (Version 3)
Quarter: 2014Q3

REPORT INFORMATION
  Report Type: Report from Study
  Country: US (occurrence: US)
  Receive Date: 20140729
  Receipt Date: 20140821
  Transmission Date: 20150326
  Serious: No
  Sender: FDA-Public Use
  Company Number: US-JNJFOC-20140700332

PATIENT
  Age: 49 Year
  Sex: Female
  Weight: 64.86 kg

DRUGS (3)
  1. XARELTO [Suspect]
     Active Substance: RIVAROXABAN
     Indication: DEEP VEIN THROMBOSIS
     Route: 048
     Dates: start: 201307
  2. ASPIRIN. [Concomitant]
     Active Substance: ASPIRIN
     Route: 065
  3. BONIVA [Concomitant]
     Active Substance: IBANDRONATE SODIUM
     Route: 065

REACTIONS (3)
  - Blister [Recovered/Resolved]
  - Rash maculo-papular [Recovered/Resolved]
  - Scar [Recovering/Resolving]

NARRATIVE: CASE EVENT DATE: 20131008
